FAERS Safety Report 6508687-4 (Version None)
Quarter: 2009Q4

REPORT INFORMATION
  Report Type: 
  Country: None (occurrence: None)
  Receive Date: 20091221
  Receipt Date: 20090730
  Transmission Date: 20100525
  Serious: No
  Sender: FDA-Public Use
  Company Number: US-ASTRAZENECA-2009SE06374

PATIENT
  Sex: Female
  Weight: 81.2 kg

DRUGS (3)
  1. CRESTOR [Suspect]
     Route: 048
  2. DIURETIC [Concomitant]
     Indication: HYPERTENSION
  3. LEVOTHYROXINE SODIUM [Concomitant]
     Indication: THYROID DISORDER

REACTIONS (5)
  - EYE DISORDER [None]
  - HEADACHE [None]
  - MYALGIA [None]
  - RENAL DISORDER [None]
  - THYROID DISORDER [None]
